FAERS Safety Report 24291572 (Version 1)
Quarter: 2024Q3

REPORT INFORMATION
  Report Type: Spontaneous
  Country: US (occurrence: None)
  Receive Date: 20240906
  Receipt Date: 20240906
  Transmission Date: 20241017
  Serious: No
  Sender: DOMPE FARMACEUTICI
  Company Number: US-FARMAPROD-202308-202309-2834

PATIENT
  Age: 76 Year
  Sex: Female

DRUGS (6)
  1. OXERVATE [Suspect]
     Active Substance: CENEGERMIN-BKBJ
     Indication: Eye pain
     Route: 047
     Dates: start: 20230913
  2. HYDROCHLOROTHIAZIDE\TRIAMTERENE [Concomitant]
     Active Substance: HYDROCHLOROTHIAZIDE\TRIAMTERENE
     Dosage: 37.5-25 MG
  3. K-TAB [Concomitant]
     Active Substance: POTASSIUM CHLORIDE
  4. TIMOLOL-BRIMONIDIN-DORZOLAMIDE [Concomitant]
  5. BIMATOPROST [Concomitant]
     Active Substance: BIMATOPROST
  6. VITAL TEARS [Concomitant]

REACTIONS (6)
  - Eye pain [Not Recovered/Not Resolved]
  - Eyelid pain [Unknown]
  - Headache [Not Recovered/Not Resolved]
  - Nausea [Unknown]
  - Periorbital pain [Unknown]
  - Eye irritation [Unknown]

NARRATIVE: CASE EVENT DATE: 20230901
